FAERS Safety Report 24425389 (Version 1)
Quarter: 2024Q4

REPORT INFORMATION
  Report Type: Spontaneous
  Country: GB (occurrence: GB)
  Receive Date: 20241011
  Receipt Date: 20241011
  Transmission Date: 20250114
  Serious: Yes (Other)
  Sender: TEVA
  Company Number: None

PATIENT
  Age: 83 Year
  Sex: Female

DRUGS (6)
  1. TICAGRELOR [Suspect]
     Active Substance: TICAGRELOR
     Route: 065
  2. NEFOPAM [Suspect]
     Active Substance: NEFOPAM
     Route: 065
  3. CODEINE [Suspect]
     Active Substance: CODEINE
     Route: 065
  4. MORPHINE [Suspect]
     Active Substance: MORPHINE
     Route: 065
  5. RANOLAZINE [Suspect]
     Active Substance: RANOLAZINE
     Route: 065
  6. ROPINIROLE [Suspect]
     Active Substance: ROPINIROLE
     Route: 065

REACTIONS (2)
  - Disorientation [Recovered/Resolved]
  - Malaise [Recovered/Resolved]
